FAERS Safety Report 14111768 (Version 2)
Quarter: 2018Q4

REPORT INFORMATION
  Report Type: Report from Study
  Country: CA (occurrence: CA)
  Receive Date: 20171020
  Receipt Date: 20181226
  Transmission Date: 20190204
  Serious: Yes (Other)
  Sender: FDA-Public Use
  Company Number: CA-UCBSA-2017041381

PATIENT
  Age: 67 Year
  Sex: Male

DRUGS (2)
  1. CARBIDOPA W/LEVODOPA [Concomitant]
     Active Substance: CARBIDOPA\LEVODOPA
     Indication: PRODUCT USED FOR UNKNOWN INDICATION
  2. ROTIGOTINE [Suspect]
     Active Substance: ROTIGOTINE
     Indication: PARKINSON^S DISEASE

REACTIONS (21)
  - Middle insomnia [Unknown]
  - Sexual dysfunction [Unknown]
  - Poor quality sleep [Unknown]
  - Anosmia [Unknown]
  - Nocturia [Unknown]
  - Nightmare [Unknown]
  - Drooling [Unknown]
  - Choking [Unknown]
  - Libido decreased [Unknown]
  - Ageusia [Unknown]
  - Micturition urgency [Unknown]
  - Balance disorder [Unknown]
  - Stress [Unknown]
  - Tremor [Unknown]
  - Speech disorder [Unknown]
  - Constipation [Unknown]
  - Asthenia [Unknown]
  - Anxiety [Unknown]
  - Dysphagia [Unknown]
  - Dizziness [Unknown]
  - Insomnia [Unknown]
